FAERS Safety Report 5488387-2 (Version None)
Quarter: 2007Q4

REPORT INFORMATION
  Report Type: 
  Country: None (occurrence: None)
  Receive Date: 20071017
  Receipt Date: 20071012
  Transmission Date: 20080405
  Serious: Yes (Other)
  Sender: FDA-Public Use
  Company Number: US-MERCK-0710USA03040

PATIENT
  Age: 60 Year
  Sex: Male
  Weight: 70 kg

DRUGS (7)
  1. INDOCIN [Suspect]
     Route: 048
     Dates: start: 20070920, end: 20070923
  2. WARFARIN SODIUM [Suspect]
     Indication: THROMBOSIS PROPHYLAXIS
     Route: 048
     Dates: start: 20070909
  3. PRIMIDONE [Concomitant]
     Route: 065
  4. TYLENOL (CAPLET) [Concomitant]
     Route: 065
  5. DILANTIN [Suspect]
     Indication: CONVULSION
     Route: 048
  6. DILANTIN [Suspect]
     Indication: PROPHYLAXIS
     Route: 048
  7. VITAMINS (UNSPECIFIED) [Concomitant]
     Route: 065

REACTIONS (6)
  - BLOOD PRESSURE DECREASED [None]
  - CONVULSION [None]
  - DRUG INTERACTION [None]
  - LETHARGY [None]
  - PRURITUS [None]
  - RASH MACULAR [None]
